FAERS Safety Report 20499289 (Version 1)
Quarter: 2022Q1

REPORT INFORMATION
  Report Type: Spontaneous
  Country: US (occurrence: US)
  Receive Date: 20220222
  Receipt Date: 20220222
  Transmission Date: 20220423
  Serious: No
  Sender: FDA-Public Use
  Company Number: US-JNJFOC-20220230687

PATIENT
  Sex: Female

DRUGS (1)
  1. XARELTO [Suspect]
     Active Substance: RIVAROXABAN
     Indication: Thrombosis
     Dosage: SHE TOOK WEEK?THREE AND FOUR INSTEAD OF WEEK ONE AND TWO?SHE TOOK 15 MG AND 20 MG DURING THE FIRST T
     Route: 048

REACTIONS (2)
  - Inappropriate schedule of product administration [Unknown]
  - Product administration error [Unknown]
